FAERS Safety Report 14419251 (Version 2)
Quarter: 2018Q1

REPORT INFORMATION
  Report Type: Spontaneous
  Country: US (occurrence: US)
  Receive Date: 20180122
  Receipt Date: 20180126
  Transmission Date: 20180509
  Serious: Yes (Hospitalization, Other)
  Sender: FDA-Public Use
  Company Number: US-PFIZER INC-2018025965

PATIENT
  Age: 20 Year
  Sex: Male

DRUGS (1)
  1. CONCERTA [Suspect]
     Active Substance: METHYLPHENIDATE HYDROCHLORIDE
     Indication: ATTENTION DEFICIT/HYPERACTIVITY DISORDER
     Dosage: 177 DF, SINGLE (54MG TABS (9.5 GM))
     Route: 048

REACTIONS (4)
  - Bundle branch block right [Unknown]
  - Intentional overdose [Unknown]
  - Hypertension [Unknown]
  - Tachycardia [Unknown]
